FAERS Safety Report 4435556-6 (Version None)
Quarter: 2004Q3

REPORT INFORMATION
  Report Type: 
  Country: None (occurrence: None)
  Receive Date: 20040826
  Receipt Date: 20040810
  Transmission Date: 20050211
  Serious: Yes (Hospitalization)
  Sender: FDA-Public Use
  Company Number: 2004-DE-04322GD

PATIENT
  Age: 34 Year
  Sex: Female

DRUGS (3)
  1. CODEINE PHOSPHATE AND ACETAMINOPHEN [Suspect]
     Indication: ABDOMINAL PAIN UPPER
     Dosage: SEE TEXT, PO
     Route: 048
  2. MIFEPRISTONE (MIFEPRISTONE) [Suspect]
     Indication: ABORTION
     Dosage: 600 MG, ONCE, PO
     Route: 048
  3. GEMEPROST [Suspect]
     Indication: ABORTION
     Dosage: 4 MG (1 MG, EVERY THIRD HOUR), VA
     Route: 067

REACTIONS (1)
  - PANCREATITIS NECROTISING [None]
